FAERS Safety Report 4960805-5 (Version None)
Quarter: 2006Q2

REPORT INFORMATION
  Report Type: 
  Country: None (occurrence: None)
  Receive Date: 20060403
  Receipt Date: 20060329
  Transmission Date: 20061013
  Serious: Yes (Other)
  Sender: FDA-Public Use
  Company Number: US-GLAXOSMITHKLINE-A0599461A

PATIENT
  Age: 46 Year
  Sex: Female

DRUGS (3)
  1. SENSODYNE-F [Suspect]
     Indication: DENTAL CLEANING
  2. CORTISONE ACETATE TAB [Concomitant]
  3. PREVACID [Concomitant]

REACTIONS (12)
  - ASTHMA [None]
  - BRONCHITIS [None]
  - CANDIDIASIS [None]
  - DRY MOUTH [None]
  - FEELING ABNORMAL [None]
  - GLOSSITIS [None]
  - ORAL PAIN [None]
  - SINUSITIS [None]
  - SWELLING FACE [None]
  - SWOLLEN TONGUE [None]
  - TONGUE ULCERATION [None]
  - WEIGHT DECREASED [None]
